FAERS Safety Report 5951882-3 (Version None)
Quarter: 2008Q4

REPORT INFORMATION
  Report Type: 
  Country: None (occurrence: None)
  Receive Date: 20081113
  Receipt Date: 20081101
  Transmission Date: 20090506
  Serious: Yes (Death, Life-Threatening, Hospitalization, Other)
  Sender: FDA-Public Use
  Company Number: UA-BRISTOL-MYERS SQUIBB COMPANY-14328686

PATIENT
  Age: 66 Year
  Sex: Female

DRUGS (7)
  1. BLINDED: IPILIMUMAB [Suspect]
     Indication: LUNG NEOPLASM MALIGNANT
     Dosage: INITIATED ON 07JUL08,
     Route: 042
     Dates: start: 20080818, end: 20080818
  2. TAXOL [Suspect]
     Indication: LUNG NEOPLASM MALIGNANT
     Dosage: INITIATED ON 07JUL08
     Route: 042
     Dates: start: 20081021, end: 20081021
  3. PARAPLATIN [Suspect]
     Indication: LUNG NEOPLASM MALIGNANT
     Dosage: 1 DOSAGE FORM = AUC=6. INITIATED ON 07JUL08
     Route: 042
     Dates: start: 20081021, end: 20081021
  4. BLINDED: PLACEBO [Suspect]
     Indication: LUNG NEOPLASM MALIGNANT
     Dosage: INITIATED ON 07JUL08, DRUG INTERRUPTED ON 18AUG08
     Route: 042
     Dates: start: 20080818, end: 20080818
  5. CIPROFLOXACIN HCL [Suspect]
     Dates: start: 20080826, end: 20080901
  6. METHYLPREDNISOLONE 16MG TAB [Suspect]
     Dates: start: 20080913, end: 20081101
  7. CAPTOPRIL [Concomitant]
     Dates: start: 20060101

REACTIONS (4)
  - CARDIO-RESPIRATORY ARREST [None]
  - COLITIS [None]
  - DIARRHOEA [None]
  - ERYSIPELAS [None]
